FAERS Safety Report 5103660-5 (Version None)
Quarter: 2006Q3

REPORT INFORMATION
  Report Type: 
  Country: None (occurrence: None)
  Receive Date: 20060908
  Receipt Date: 20060831
  Transmission Date: 20061208
  Serious: Yes (Death, Hospitalization)
  Sender: FDA-Public Use
  Company Number: 163-20785-06081477

PATIENT
  Age: 57 Year
  Sex: Female

DRUGS (3)
  1. THALOMID [Suspect]
     Indication: MALIGNANT MELANOMA
     Dosage: SEE IMAGE
     Route: 048
     Dates: start: 20060625, end: 20060101
  2. THALOMID [Suspect]
     Indication: MALIGNANT MELANOMA
     Dosage: SEE IMAGE
     Route: 048
     Dates: start: 20050815
  3. TEMODAR [Concomitant]

REACTIONS (2)
  - METASTATIC MALIGNANT MELANOMA [None]
  - RENAL FAILURE ACUTE [None]
